FAERS Safety Report 15589351 (Version 2)
Quarter: 2019Q4

REPORT INFORMATION
  Report Type: Report from Study
  Country: US (occurrence: US)
  Receive Date: 20181106
  Receipt Date: 20191223
  Transmission Date: 20200122
  Serious: No
  Sender: FDA-Public Use
  Company Number: US-ROCHE-2209264

PATIENT
  Age: 55 Year
  Sex: Female

DRUGS (5)
  1. OCREVUS [Suspect]
     Active Substance: OCRELIZUMAB
     Dosage: DOSING REGIMEN 2 TIMES?DISPENSE 2 300 MG VIALS
     Route: 042
  2. BENADRYL [Concomitant]
     Active Substance: DIPHENHYDRAMINE HYDROCHLORIDE
     Dosage: ONGOING: UNKNOWN?BUT DUE TO LACK OF AVAILABILITY SHE RECEIVED BEFORE HER 24/OCT/2018 INFUSION
     Route: 048
  3. OCREVUS [Suspect]
     Active Substance: OCRELIZUMAB
     Indication: MULTIPLE SCLEROSIS
     Dosage: ONGOING: UNKNOWN
     Route: 042
     Dates: start: 2017
  4. OCREVUS [Suspect]
     Active Substance: OCRELIZUMAB
     Dosage: DISPENSE IN THE FORM OF 2 OF 300 MG VIALS (REFILL 6)
     Route: 042
  5. BENADRYL [Concomitant]
     Active Substance: DIPHENHYDRAMINE HYDROCHLORIDE
     Dosage: ONGOING:UNKNOWN
     Route: 042

REACTIONS (7)
  - Fatigue [Unknown]
  - Pruritus [Recovered/Resolved]
  - Malaise [Unknown]
  - Urticaria [Recovered/Resolved]
  - Pyrexia [Recovered/Resolved]
  - Oral herpes [Unknown]
  - Blister [Unknown]

NARRATIVE: CASE EVENT DATE: 20181026
